FAERS Safety Report 7482535-0 (Version None)
Quarter: 2011Q2

REPORT INFORMATION
  Report Type: 
  Country: None (occurrence: None)
  Receive Date: 20110516
  Receipt Date: 20110421
  Transmission Date: 20111010
  Serious: Yes (Hospitalization)
  Sender: FDA-Public Use
  Company Number: US-BAYER-201020520NA

PATIENT
  Age: 43 Year
  Sex: Female
  Weight: 104 kg

DRUGS (15)
  1. VITAMIN C [Concomitant]
  2. ZOLOFT [Concomitant]
  3. PAXIL [Concomitant]
  4. LIPITOR [Concomitant]
     Dosage: 10 MG, UNK
     Route: 048
     Dates: start: 20050101
  5. LISINOPRIL [Concomitant]
     Dosage: 5 MG, UNK
     Dates: start: 20050101
  6. REQUIP [Concomitant]
     Dosage: UNK
  7. PREVACID [Concomitant]
  8. SERTRALINE HYDROCHLORIDE [Concomitant]
  9. IBUPROFEN [Concomitant]
     Dosage: 800 MG, UNK
     Dates: start: 20070101
  10. MULTI-VITAMIN [Concomitant]
  11. NAPROXEN [Concomitant]
  12. ROPINIROLE [Concomitant]
  13. YAZ [Suspect]
     Indication: PRODUCT USED FOR UNKNOWN INDICATION
     Dates: start: 20071201, end: 20091226
  14. PROPOXYPHENE HYDROCHLORIDE [Concomitant]
  15. AMITRIPTYLINE HCL [Concomitant]

REACTIONS (4)
  - ABDOMINAL PAIN [None]
  - NAUSEA [None]
  - VOMITING [None]
  - PANCREATITIS [None]
